FAERS Safety Report 12427629 (Version 1)
Quarter: 2016Q2

REPORT INFORMATION
  Report Type: Report from Study
  Country: US (occurrence: US)
  Receive Date: 20160602
  Receipt Date: 20160602
  Transmission Date: 20160815
  Serious: No
  Sender: FDA-Public Use
  Company Number: US-AMGEN-USASL2016068185

PATIENT
  Age: 42 Year
  Sex: Female

DRUGS (1)
  1. ENBREL [Suspect]
     Active Substance: ETANERCEPT
     Indication: RHEUMATOID ARTHRITIS
     Dosage: 50 MG, QWK
     Route: 065
     Dates: start: 20160421

REACTIONS (9)
  - Chromaturia [Unknown]
  - Injection site rash [Unknown]
  - Injection site pruritus [Unknown]
  - Increased appetite [Unknown]
  - Injection site erythema [Unknown]
  - Fluid retention [Unknown]
  - Nausea [Unknown]
  - Injection site swelling [Unknown]
  - Sleep terror [Unknown]

NARRATIVE: CASE EVENT DATE: 2016
